FAERS Safety Report 24072354 (Version 3)
Quarter: 2024Q3

REPORT INFORMATION
  Report Type: Spontaneous
  Country: US (occurrence: US)
  Receive Date: 20240710
  Receipt Date: 20240729
  Transmission Date: 20241016
  Serious: No
  Sender: GLAXOSMITHKLINE
  Company Number: US-GSK-US2024083903

PATIENT
  Sex: Female

DRUGS (2)
  1. BENLYSTA [Suspect]
     Active Substance: BELIMUMAB
     Indication: Systemic lupus erythematosus
     Dosage: 200 MG, WE 200 MG,IN SINGLE DOSE AUTO INJECTOR
  2. BENLYSTA [Suspect]
     Active Substance: BELIMUMAB
     Dosage: 200 MG/ML, WE
     Route: 058

REACTIONS (2)
  - Decreased immune responsiveness [Unknown]
  - Product dose omission issue [Unknown]
